FAERS Safety Report 16461830 (Version 1)
Quarter: 2019Q2

REPORT INFORMATION
  Report Type: Spontaneous
  Country: US (occurrence: US)
  Receive Date: 20190621
  Receipt Date: 20190621
  Transmission Date: 20190711
  Serious: No
  Sender: FDA-Public Use
  Company Number: US-TEVA-2019-US-1066984

PATIENT

DRUGS (1)
  1. CLONAZEPAM. [Suspect]
     Active Substance: CLONAZEPAM
     Dosage: BOTTLE: 100

REACTIONS (3)
  - Drug half-life reduced [Unknown]
  - Therapeutic product effect decreased [Unknown]
  - Product quality issue [Unknown]
